FAERS Safety Report 6490426-7 (Version None)
Quarter: 2009Q4

REPORT INFORMATION
  Report Type: 
  Country: None (occurrence: None)
  Receive Date: 20091211
  Receipt Date: 20091207
  Transmission Date: 20100525
  Serious: Yes (Hospitalization)
  Sender: FDA-Public Use
  Company Number: DE-SANOFI-AVENTIS-200911821DE

PATIENT
  Age: 71 Year
  Sex: Female
  Weight: 71 kg

DRUGS (1)
  1. LANTUS [Suspect]
     Indication: INSULIN-REQUIRING TYPE 2 DIABETES MELLITUS
     Route: 058
     Dates: start: 20040101, end: 20090627

REACTIONS (12)
  - ALOPECIA [None]
  - ASTHENIA [None]
  - BREAST CANCER [None]
  - BREAST DISCHARGE [None]
  - DEPRESSION [None]
  - DIARRHOEA [None]
  - DIVERTICULUM INTESTINAL [None]
  - FIBROCYSTIC BREAST DISEASE [None]
  - INTESTINAL POLYP [None]
  - UNEVALUABLE EVENT [None]
  - URETHRAL CARUNCLE [None]
  - UTERINE DISORDER [None]
